FAERS Safety Report 20157428 (Version 1)
Quarter: 2021Q4

REPORT INFORMATION
  Report Type: Spontaneous
  Country: US (occurrence: US)
  Receive Date: 20211207
  Receipt Date: 20211207
  Transmission Date: 20220303
  Serious: No
  Sender: FDA-Public Use
  Company Number: US-ORGANON-O2112USA000170

PATIENT
  Age: 33 Year
  Sex: Female
  Weight: 67.574 kg

DRUGS (1)
  1. NEXPLANON [Suspect]
     Active Substance: ETONOGESTREL
     Indication: Contraception
     Dosage: 1 IMPLANT OF 68 MG ONCE
     Route: 059
     Dates: start: 20200512, end: 20210923

REACTIONS (2)
  - Implant site pruritus [Recovered/Resolved]
  - Device breakage [Recovered/Resolved]
